FAERS Safety Report 4378157-0 (Version None)
Quarter: 2004Q2

REPORT INFORMATION
  Report Type: 
  Country: None (occurrence: None)
  Receive Date: 20040615
  Receipt Date: 20040615
  Transmission Date: 20050107
  Serious: Yes (Other)
  Sender: FDA-Public Use
  Company Number: None

PATIENT
  Age: 68 Year
  Sex: Male
  Weight: 116.1208 kg

DRUGS (1)
  1. OMEPRAZOLE  20MG QD MFG. BY LEK PHARMACEUTICALS [Suspect]

REACTIONS (5)
  - ABDOMINAL PAIN UPPER [None]
  - PHARMACEUTICAL PRODUCT COMPLAINT [None]
  - SELF-MEDICATION [None]
  - STOMACH DISCOMFORT [None]
  - VOMITING [None]
